FAERS Safety Report 19047339 (Version 1)
Quarter: 2021Q1

REPORT INFORMATION
  Report Type: Spontaneous
  Country: US (occurrence: US)
  Receive Date: 20210323
  Receipt Date: 20210323
  Transmission Date: 20210420
  Serious: Yes (Hospitalization)
  Sender: FDA-Public Use
  Company Number: US-PFIZER INC-2021211283

PATIENT
  Age: 51 Year
  Sex: Male
  Weight: 225 kg

DRUGS (45)
  1. MEROPENEM. [Concomitant]
     Active Substance: MEROPENEM
     Indication: SEPSIS
  2. DAPTOMYCIN. [Interacting]
     Active Substance: DAPTOMYCIN
     Indication: ENTEROCOCCAL INFECTION
  3. METRONIDAZOLE. [Interacting]
     Active Substance: METRONIDAZOLE
     Indication: ENTEROCOCCAL INFECTION
  4. WARFARIN SODIUM. [Interacting]
     Active Substance: WARFARIN SODIUM
     Indication: PAIN
  5. MEROPENEM [MEROPENEM TRIHYDRATE] [Concomitant]
     Active Substance: MEROPENEM
     Dosage: UNK
  6. TAMSULOSIN [Concomitant]
     Active Substance: TAMSULOSIN
     Dosage: 0.4 MG, DAILY
     Route: 048
  7. MEROPENEM. [Concomitant]
     Active Substance: MEROPENEM
     Indication: ENTEROCOCCAL INFECTION
  8. DAPTOMYCIN. [Interacting]
     Active Substance: DAPTOMYCIN
     Indication: URINARY TRACT INFECTION
  9. DAPTOMYCIN. [Interacting]
     Active Substance: DAPTOMYCIN
     Indication: PROCEDURAL HAEMORRHAGE
  10. INSULIN [Concomitant]
     Active Substance: INSULIN NOS
     Indication: TYPE 1 DIABETES MELLITUS
     Dosage: UNK (INJECTED SUBCUTANEOUSLY PER SLIDING SCALE)
     Route: 058
  11. MEROPENEM. [Concomitant]
     Active Substance: MEROPENEM
     Indication: PRODUCT USED FOR UNKNOWN INDICATION
  12. CIPROFLOXACIN. [Suspect]
     Active Substance: CIPROFLOXACIN
     Indication: OBSTRUCTIVE PANCREATITIS
     Dosage: UNK
  13. DAPTOMYCIN. [Interacting]
     Active Substance: DAPTOMYCIN
     Indication: ENTEROCOCCAL BACTERAEMIA
     Dosage: 1350 MG ((6 MG/KG) I.V. EVERY 48 HOURS)
     Route: 042
  14. METRONIDAZOLE. [Interacting]
     Active Substance: METRONIDAZOLE
     Indication: PAIN
  15. PHYTONADIONE. [Interacting]
     Active Substance: PHYTONADIONE
     Dosage: UNK
  16. HYDRALAZINE HYDROCHLORIDE. [Concomitant]
     Active Substance: HYDRALAZINE HYDROCHLORIDE
     Dosage: 25 MG, 3X/DAY (EVERY 8 HOURS)
     Route: 048
  17. TRAMADOL HYDROCHLORIDE. [Concomitant]
     Active Substance: TRAMADOL HYDROCHLORIDE
     Indication: PAIN
     Dosage: 50 MG, AS NEEDED (EVERY 4 HOURS)
     Route: 048
  18. PHYTONADIONE. [Concomitant]
     Active Substance: PHYTONADIONE
     Dosage: 10 MG (ON DAY 15)
     Route: 042
  19. DAPTOMYCIN. [Interacting]
     Active Substance: DAPTOMYCIN
     Indication: OBSTRUCTIVE PANCREATITIS
  20. HEPARIN [Concomitant]
     Active Substance: HEPARIN SODIUM
     Dosage: UNK (INFUSION)
     Route: 042
  21. MEROPENEM. [Concomitant]
     Active Substance: MEROPENEM
     Indication: EVIDENCE BASED TREATMENT
     Dosage: 1000 MG, 2X/DAY (EVERY 12 HOURS (INFUSED OVER 3 HOURS))
     Route: 042
  22. MEROPENEM. [Concomitant]
     Active Substance: MEROPENEM
     Indication: ENTEROCOCCAL BACTERAEMIA
  23. LINEZOLID. [Concomitant]
     Active Substance: LINEZOLID
     Indication: ENTEROCOCCAL INFECTION
     Dosage: UNK
  24. DAPTOMYCIN. [Interacting]
     Active Substance: DAPTOMYCIN
     Indication: ABDOMINAL INFECTION
  25. WARFARIN SODIUM. [Interacting]
     Active Substance: WARFARIN SODIUM
     Indication: ABDOMINAL INFECTION
  26. BUMETANIDE. [Concomitant]
     Active Substance: BUMETANIDE
     Dosage: 2 MG, 2X/DAY
     Route: 048
  27. OMEPRAZOLE. [Concomitant]
     Active Substance: OMEPRAZOLE
     Dosage: 40 MG, DAILY
     Route: 048
  28. DAPTOMYCIN. [Interacting]
     Active Substance: DAPTOMYCIN
     Indication: ABDOMINAL SEPSIS
  29. DAPTOMYCIN. [Interacting]
     Active Substance: DAPTOMYCIN
     Indication: PAIN
  30. METRONIDAZOLE. [Interacting]
     Active Substance: METRONIDAZOLE
     Indication: OBSTRUCTIVE PANCREATITIS
     Dosage: UNK
  31. METRONIDAZOLE. [Interacting]
     Active Substance: METRONIDAZOLE
     Indication: PRODUCT USED FOR UNKNOWN INDICATION
  32. WARFARIN SODIUM. [Interacting]
     Active Substance: WARFARIN SODIUM
     Indication: URINARY TRACT INFECTION
  33. METOPROLOL TARTRATE. [Concomitant]
     Active Substance: METOPROLOL TARTRATE
     Dosage: 50 MG, 2X/DAY
     Route: 048
  34. PHYTONADIONE. [Concomitant]
     Active Substance: PHYTONADIONE
     Indication: COAGULOPATHY
     Dosage: 10 MG
     Route: 048
  35. PHYTONADIONE. [Concomitant]
     Active Substance: PHYTONADIONE
     Dosage: 10 MG
     Route: 042
  36. MEROPENEM. [Concomitant]
     Active Substance: MEROPENEM
     Indication: ABDOMINAL INFECTION
  37. WARFARIN SODIUM. [Interacting]
     Active Substance: WARFARIN SODIUM
     Indication: PRODUCT USED FOR UNKNOWN INDICATION
  38. WARFARIN SODIUM. [Interacting]
     Active Substance: WARFARIN SODIUM
     Indication: OBSTRUCTIVE PANCREATITIS
  39. WARFARIN SODIUM. [Interacting]
     Active Substance: WARFARIN SODIUM
     Indication: PROCEDURAL HAEMORRHAGE
  40. DAPTOMYCIN. [Interacting]
     Active Substance: DAPTOMYCIN
     Indication: PRODUCT USED FOR UNKNOWN INDICATION
  41. HEPARIN SODIUM. [Interacting]
     Active Substance: HEPARIN SODIUM
     Indication: ANTICOAGULANT THERAPY
     Dosage: UNK
  42. WARFARIN [Interacting]
     Active Substance: WARFARIN
     Indication: ANTICOAGULANT THERAPY
     Dosage: UNK
  43. WARFARIN SODIUM. [Interacting]
     Active Substance: WARFARIN SODIUM
     Indication: ENTEROCOCCAL INFECTION
     Dosage: 7.5 MG, DAILY (5 DOSES)
     Route: 048
  44. DILTIAZEM HYDROCHLORIDE. [Concomitant]
     Active Substance: DILTIAZEM HYDROCHLORIDE
     Dosage: 180 MG, DAILY
     Route: 048
  45. METRONIDAZOLE. [Concomitant]
     Active Substance: METRONIDAZOLE
     Dosage: UNK (24 HOURS OF THERAPY)

REACTIONS (3)
  - Prothrombin time prolonged [Unknown]
  - International normalised ratio increased [Recovering/Resolving]
  - Drug interaction [Unknown]
